FAERS Safety Report 5625273-9 (Version None)
Quarter: 2008Q1

REPORT INFORMATION
  Report Type: 
  Country: None (occurrence: None)
  Receive Date: 20080208
  Receipt Date: 20080131
  Transmission Date: 20080703
  Serious: Yes (Other)
  Sender: FDA-Public Use
  Company Number: 2005-04-1151

PATIENT
  Age: 55 Year
  Sex: Male

DRUGS (5)
  1. RIBAVIRIN [Suspect]
     Indication: HEPATITIS C VIRUS
     Dosage: 600 MG; BID; PO
     Route: 048
  2. RIBAVIRIN [Suspect]
     Indication: HEPATITIS C VIRUS
     Dosage: 600 MG; BID; PO
     Route: 048
     Dates: start: 19960615
  3. INTERFERON ALFA-2A (INTERFERON ALFA-2A) [Suspect]
     Indication: HEPATITIS C VIRUS
     Dosage: 3 MIU; TIW;
  4. INTERFERON ALFA-2A (INTERFERON ALFA-2A) [Suspect]
     Indication: HEPATITIS C VIRUS
     Dosage: 3 MIU; TIW;
     Dates: start: 19960615
  5. MESALAMINE [Concomitant]

REACTIONS (6)
  - ALANINE AMINOTRANSFERASE INCREASED [None]
  - CONDITION AGGRAVATED [None]
  - DEPRESSION [None]
  - FACIAL PALSY [None]
  - FATIGUE [None]
  - TRANSAMINASES ABNORMAL [None]
